FAERS Safety Report 8416572-6 (Version None)
Quarter: 2012Q2

REPORT INFORMATION
  Report Type: 
  Country: None (occurrence: None)
  Receive Date: 20120323
  Receipt Date: 20110816
  Transmission Date: 20120825
  Serious: Yes (Hospitalization)
  Sender: FDA-Public Use
  Company Number: 163-21880-11082040

PATIENT
  Age: 97 Year
  Sex: Male
  Weight: 81.6475 kg

DRUGS (5)
  1. DILTIAZEM [Concomitant]
  2. ALLOPURINOL [Concomitant]
  3. FLOMAX [Concomitant]
  4. REVLIMID [Suspect]
     Indication: MYELODYSPLASTIC SYNDROME
     Dosage: 10 MG, DAILY X 21 DAYS, PO
     Route: 048
     Dates: start: 20110701
  5. PROTON PUMP (PROTON PUMP INHIBITORS) [Concomitant]

REACTIONS (5)
  - FATIGUE [None]
  - FAECALOMA [None]
  - PNEUMONIA [None]
  - DECREASED APPETITE [None]
  - CONSTIPATION [None]
